FAERS Safety Report 4712396-1 (Version None)
Quarter: 2005Q3

REPORT INFORMATION
  Report Type: 
  Country: None (occurrence: None)
  Receive Date: 20050711
  Receipt Date: 20050630
  Transmission Date: 20060218
  Serious: Yes (Hospitalization, Other)
  Sender: FDA-Public Use
  Company Number: 2005094839

PATIENT
  Age: 49 Year
  Sex: Female
  Weight: 58.514 kg

DRUGS (1)
  1. SPIRONOLACTONE [Suspect]
     Indication: HIRSUTISM
     Dosage: 50 MG (50 MG, QD), ORAL
     Route: 048

REACTIONS (1)
  - THYROID GLAND CANCER [None]
